FAERS Safety Report 6730751-5 (Version None)
Quarter: 2010Q2

REPORT INFORMATION
  Report Type: 
  Country: None (occurrence: None)
  Receive Date: 20100518
  Receipt Date: 20100506
  Transmission Date: 20101027
  Serious: Yes (Hospitalization, Other)
  Sender: FDA-Public Use
  Company Number: US-ROCHE-637575

PATIENT
  Age: 39 Year
  Sex: Female

DRUGS (26)
  1. PEGINTERFERON ALFA-2A [Suspect]
     Indication: HEPATITIS C
     Route: 058
     Dates: start: 20080718, end: 20090115
  2. PEGINTERFERON ALFA-2A [Suspect]
     Route: 058
     Dates: start: 20090115, end: 20090129
  3. PEGINTERFERON ALFA-2A [Suspect]
     Route: 058
     Dates: start: 20090129, end: 20090513
  4. PEGINTERFERON ALFA-2A [Suspect]
     Route: 058
     Dates: start: 20090513, end: 20090521
  5. PEGINTERFERON ALFA-2A [Suspect]
     Route: 058
     Dates: start: 20090603
  6. RIBAVIRIN [Suspect]
     Indication: HEPATITIS C
     Route: 048
     Dates: start: 20080718, end: 20090130
  7. RIBAVIRIN [Suspect]
     Route: 048
     Dates: start: 20090130, end: 20090323
  8. RIBAVIRIN [Suspect]
     Route: 048
     Dates: start: 20090323, end: 20090512
  9. RIBAVIRIN [Suspect]
     Route: 048
     Dates: start: 20090512, end: 20090528
  10. RIBAVIRIN [Suspect]
     Dosage: 400 MG IN AM AND 200 MG IN PM
     Route: 048
     Dates: start: 20090603
  11. BLINDED VX-950 [Suspect]
     Indication: HEPATITIS C
     Route: 048
     Dates: start: 20080718, end: 20081007
  12. CARAFATE [Concomitant]
     Route: 048
     Dates: start: 20090423
  13. LIDOCAINE [Concomitant]
     Dosage: DRUG: VISCOUS LIDOCAINE
     Route: 048
     Dates: start: 20090423
  14. CLOTRIMAZOLE [Concomitant]
     Route: 048
     Dates: start: 20090419, end: 20090423
  15. MYCELEX [Concomitant]
     Route: 048
     Dates: start: 20090310, end: 20090317
  16. LEXAPRO [Concomitant]
     Indication: ANXIETY
     Route: 048
     Dates: start: 20081210, end: 20090317
  17. MAGIC MOUTHWASH NOS [Concomitant]
     Route: 048
     Dates: start: 20081002, end: 20090310
  18. REMERON [Concomitant]
     Indication: ANXIETY
     Route: 048
     Dates: start: 20090114
  19. SEROQUEL [Concomitant]
     Indication: ANXIETY
     Route: 048
     Dates: start: 20071210
  20. ATIVAN [Concomitant]
     Indication: ANXIETY
     Route: 048
     Dates: start: 20071210
  21. KLONOPIN [Concomitant]
     Indication: ANXIETY
     Route: 048
     Dates: start: 20080724
  22. REGLAN [Concomitant]
     Route: 048
     Dates: start: 20080801, end: 20081001
  23. ALEVE (CAPLET) [Concomitant]
     Route: 048
     Dates: start: 20080818, end: 20080925
  24. PHENERGAN [Concomitant]
     Indication: NAUSEA
     Route: 048
     Dates: start: 20080725, end: 20080727
  25. AMOXICILLIN [Concomitant]
     Indication: TOOTH ABSCESS
     Dates: start: 20090501
  26. NYSTATIN [Concomitant]
     Route: 048
     Dates: start: 20090101

REACTIONS (3)
  - ANAEMIA [None]
  - DEHYDRATION [None]
  - RENAL FAILURE ACUTE [None]
